FAERS Safety Report 7020759-7 (Version None)
Quarter: 2010Q3

REPORT INFORMATION
  Report Type: 
  Country: None (occurrence: None)
  Receive Date: 20100924
  Receipt Date: 20100913
  Transmission Date: 20110219
  Serious: Yes (Other)
  Sender: FDA-Public Use
  Company Number: 2010EU004900

PATIENT
  Sex: Male

DRUGS (2)
  1. TACROLIMUS [Suspect]
     Indication: INTESTINAL TRANSPLANT
  2. CAMPATH [Suspect]
     Indication: INTESTINAL TRANSPLANT

REACTIONS (3)
  - AUTOIMMUNE PANCYTOPENIA [None]
  - COOMBS TEST POSITIVE [None]
  - CYTOMEGALOVIRUS INFECTION [None]
